FAERS Safety Report 5526712-4 (Version None)
Quarter: 2007Q4

REPORT INFORMATION
  Report Type: 
  Country: None (occurrence: None)
  Receive Date: 20071127
  Receipt Date: 20071116
  Transmission Date: 20080405
  Serious: Yes (Hospitalization)
  Sender: FDA-Public Use
  Company Number: US-JNJFOC-20071107386

PATIENT
  Sex: Female
  Weight: 147.87 kg

DRUGS (9)
  1. REMICADE [Suspect]
     Indication: RHEUMATOID ARTHRITIS
     Route: 042
  2. NIFEREX [Concomitant]
     Indication: ANAEMIA
     Route: 048
  3. NORVASC [Concomitant]
     Indication: HYPERTENSION
     Route: 048
  4. PRILOSEC [Concomitant]
     Indication: GASTROOESOPHAGEAL REFLUX DISEASE
     Route: 048
  5. REGLAN [Concomitant]
     Route: 048
  6. NAMENDA [Concomitant]
     Indication: AMNESIA
     Route: 048
  7. ZAROXOLYN [Concomitant]
     Indication: DIURETIC THERAPY
     Route: 048
  8. CLARITIN [Concomitant]
     Indication: MULTIPLE ALLERGIES
     Route: 048
  9. QUINAPRIL HCL [Concomitant]
     Indication: HYPERTENSION
     Route: 048

REACTIONS (2)
  - COUGH [None]
  - UNEVALUABLE EVENT [None]
